FAERS Safety Report 5605730-1 (Version None)
Quarter: 2008Q1

REPORT INFORMATION
  Report Type: 
  Country: None (occurrence: None)
  Receive Date: 20080129
  Receipt Date: 20080116
  Transmission Date: 20080703
  Serious: Yes (Hospitalization)
  Sender: FDA-Public Use
  Company Number: US-ELI_LILLY_AND_COMPANY-US200712004216

PATIENT
  Sex: Female
  Weight: 90.249 kg

DRUGS (12)
  1. BYETTA [Suspect]
     Dosage: 5 UG, 2/D
     Route: 058
     Dates: start: 20050101, end: 20050101
  2. BYETTA [Suspect]
     Dosage: 10 UG, 2/D
     Route: 058
     Dates: start: 20050101, end: 20050101
  3. BYETTA [Suspect]
     Dosage: 5 UG, 2/D
     Route: 058
     Dates: start: 20050101
  4. GLUCOPHAGE [Concomitant]
     Indication: DIABETES MELLITUS
     Dosage: 500 MG, 2/D
  5. LANTUS [Concomitant]
     Indication: DIABETES MELLITUS
     Dosage: 70 U, UNKNOWN
  6. TOPROL-XL [Concomitant]
     Dosage: 50 MG, DAILY (1/D)
  7. CRESTOR [Concomitant]
     Dosage: 10 MG, DAILY (1/D)
  8. ISOSORBIDE DINITRATE [Concomitant]
     Dosage: 60 MG, DAILY (1/D)
  9. FUROSEMIDE [Concomitant]
     Dosage: 40 MG, DAILY (1/D)
  10. PREVACID [Concomitant]
     Dosage: 30 MG, DAILY (1/D)
  11. LOTENSIN [Concomitant]
     Dosage: 10 MG, DAILY (1/D)
  12. SYNTHROID [Concomitant]
     Dosage: 50 UG, DAILY (1/D)

REACTIONS (6)
  - ABSCESS [None]
  - DECREASED APPETITE [None]
  - DRUG EFFECT DECREASED [None]
  - NAUSEA [None]
  - STAPHYLOCOCCAL INFECTION [None]
  - WEIGHT DECREASED [None]
